FAERS Safety Report 7044349-5 (Version None)
Quarter: 2010Q4

REPORT INFORMATION
  Report Type: 
  Country: None (occurrence: None)
  Receive Date: 20101014
  Receipt Date: 20101006
  Transmission Date: 20110411
  Serious: Yes (Death, Other)
  Sender: FDA-Public Use
  Company Number: US-TEVA-250877USA

PATIENT
  Sex: Male

DRUGS (1)
  1. DISULFIRAM TABLETS, 250 MG AND 500 MG (ANTABUSE?) [Suspect]
     Route: 048

REACTIONS (2)
  - ASPHYXIA [None]
  - URINE ALCOHOL TEST POSITIVE [None]
